FAERS Safety Report 10012888 (Version 2)
Quarter: 2014Q1

REPORT INFORMATION
  Report Type: Spontaneous
  Country: SE (occurrence: SE)
  Receive Date: 20140314
  Receipt Date: 20140314
  Transmission Date: 20141002
  Serious: Yes (Other)
  Sender: FDA-Public Use
  Company Number: SE-ALLERGAN-1319987US

PATIENT
  Age: 21 Year
  Sex: Female

DRUGS (2)
  1. BOTOX [Suspect]
     Indication: URINARY INCONTINENCE
     Dosage: 300 UNITS, SINGLE
     Route: 043
     Dates: start: 20131014, end: 20131014
  2. MIRENA [Concomitant]
     Indication: PRODUCT USED FOR UNKNOWN INDICATION
     Dosage: 20 ?G/ 24 HOURS
     Route: 015

REACTIONS (2)
  - Respiratory distress [Not Recovered/Not Resolved]
  - Dyspnoea [Not Recovered/Not Resolved]
